FAERS Safety Report 8976078 (Version 4)
Quarter: 2013Q2

REPORT INFORMATION
  Report Type: Spontaneous
  Country: BR (occurrence: BR)
  Receive Date: 20121219
  Receipt Date: 20130417
  Transmission Date: 20140414
  Serious: Yes (Other)
  Sender: FDA-Public Use
  Company Number: BR-ROCHE-1170790

PATIENT
  Sex: Female
  Weight: 49.03 kg

DRUGS (11)
  1. XOLAIR [Suspect]
     Indication: ASTHMA
     Route: 065
     Dates: start: 200908
  2. AMINOPHYLLINE [Concomitant]
     Route: 065
  3. ACCOLATE [Concomitant]
  4. OS-CAL 500 WITH D [Concomitant]
  5. BEROTEC [Concomitant]
  6. BRICANYL [Concomitant]
  7. ADRENALIN [Concomitant]
     Route: 065
  8. FORASEQ (BRAZIL) [Concomitant]
  9. ACLASTA [Concomitant]
  10. CORTISONE [Concomitant]
  11. DEPURA [Concomitant]

REACTIONS (12)
  - Pericarditis [Recovered/Resolved]
  - Asthmatic crisis [Recovering/Resolving]
  - Secondary adrenocortical insufficiency [Recovering/Resolving]
  - Osteoporosis [Recovering/Resolving]
  - Blood immunoglobulin E increased [Recovering/Resolving]
  - Bacterial infection [Recovering/Resolving]
  - Immunodeficiency [Recovering/Resolving]
  - Arthralgia [Recovering/Resolving]
  - Abasia [Unknown]
  - General physical condition abnormal [Unknown]
  - Blood corticotrophin decreased [Unknown]
  - Chest pain [Recovered/Resolved]
